FAERS Safety Report 7588132-0 (Version None)
Quarter: 2011Q2

REPORT INFORMATION
  Report Type: 
  Country: None (occurrence: None)
  Receive Date: 20110627
  Receipt Date: 20110617
  Transmission Date: 20111010
  Serious: Yes (Hospitalization, Other)
  Sender: FDA-Public Use
  Company Number: 2010AC000336

PATIENT
  Age: 48 Year
  Sex: Male

DRUGS (5)
  1. WARFARIN SODIUM [Concomitant]
  2. VASOTEC [Concomitant]
  3. FUROSEMIDE [Concomitant]
  4. VICODIN [Concomitant]
  5. DIGOXIN [Suspect]
     Indication: ATRIAL FIBRILLATION
     Dosage: 0.25 MG;QD;PO
     Route: 048
     Dates: start: 20041113, end: 20060101

REACTIONS (10)
  - ANXIETY [None]
  - CONDITION AGGRAVATED [None]
  - THERAPY CESSATION [None]
  - MULTIPLE INJURIES [None]
  - PAIN [None]
  - CARDIAC DISORDER [None]
  - ECONOMIC PROBLEM [None]
  - PAIN IN EXTREMITY [None]
  - ATRIAL FLUTTER [None]
  - PARAESTHESIA [None]
